FAERS Safety Report 23577099 (Version 1)
Quarter: 2024Q1

REPORT INFORMATION
  Report Type: Spontaneous
  Country: IN (occurrence: IN)
  Receive Date: 20240228
  Receipt Date: 20240228
  Transmission Date: 20240410
  Serious: Yes (Death, Hospitalization)
  Sender: FDA-Public Use
  Company Number: IN-MYLANLABS-2024M1018276

PATIENT
  Age: 40 Year
  Sex: Female

DRUGS (10)
  1. FLUCONAZOLE [Suspect]
     Active Substance: FLUCONAZOLE
     Indication: Acanthamoeba infection
     Dosage: 400 MILLIGRAM, QD
     Route: 065
     Dates: start: 2023
  2. FLUCONAZOLE [Suspect]
     Active Substance: FLUCONAZOLE
     Indication: Encephalitis
  3. RIFAMPIN [Suspect]
     Active Substance: RIFAMPIN
     Indication: Acanthamoeba infection
     Dosage: UNK UNK, MONTHLY (FOR LEPROSY)
     Route: 065
  4. RIFAMPIN [Suspect]
     Active Substance: RIFAMPIN
     Indication: Encephalitis
     Dosage: 600 MILLIGRAM, QD (FOR ACANTHAMOEBA MENINGOENCEPHALITIS)
     Route: 065
     Dates: start: 2023
  5. RIFAMPIN [Suspect]
     Active Substance: RIFAMPIN
     Indication: Leprosy
  6. SULFAMETHOXAZOLE\TRIMETHOPRIM [Suspect]
     Active Substance: SULFAMETHOXAZOLE\TRIMETHOPRIM
     Indication: Acanthamoeba infection
     Dosage: UNK UNK, BID (COTRIMOXAZOLE [TRIMETHOPRIM/SULFAMETHOXAZOLE] 160/800MG)
     Route: 065
     Dates: start: 2023
  7. SULFAMETHOXAZOLE\TRIMETHOPRIM [Suspect]
     Active Substance: SULFAMETHOXAZOLE\TRIMETHOPRIM
     Indication: Encephalitis
  8. AMPHOTERICIN B DEOXYCHOLATE [Concomitant]
     Active Substance: AMPHOTERICIN B DEOXYCHOLATE
     Indication: Evidence based treatment
     Dosage: UNK
     Route: 065
     Dates: start: 2023
  9. CLOFAZIMINE [Concomitant]
     Active Substance: CLOFAZIMINE
     Indication: Leprosy
     Dosage: UNK UNK, QD
     Route: 065
  10. DAPSONE [Concomitant]
     Active Substance: DAPSONE
     Indication: Leprosy
     Dosage: UNK
     Route: 065

REACTIONS (2)
  - Drug ineffective for unapproved indication [Fatal]
  - Off label use [Unknown]

NARRATIVE: CASE EVENT DATE: 20230101
